FAERS Safety Report 7101394-9 (Version None)
Quarter: 2010Q4

REPORT INFORMATION
  Report Type: 
  Country: None (occurrence: None)
  Receive Date: 20101108
  Receipt Date: 20101015
  Transmission Date: 20110411
  Serious: Yes (Death)
  Sender: FDA-Public Use
  Company Number: MC201000245

PATIENT
  Age: 80 Year
  Sex: Male
  Weight: 80 kg

DRUGS (4)
  1. ANGIOMAX [Suspect]
     Indication: PERCUTANEOUS CORONARY INTERVENTION
     Dosage: 11 ML, (0.6875 MG/KG) BOLUS, INTRAVENOUS, 21.0 ML, (1.3125 MG/KG/H), INTRAVENOUS
     Route: 040
     Dates: start: 20100624, end: 20100624
  2. ANGIOMAX [Suspect]
     Indication: PERCUTANEOUS CORONARY INTERVENTION
     Dosage: 11 ML, (0.6875 MG/KG) BOLUS, INTRAVENOUS, 21.0 ML, (1.3125 MG/KG/H), INTRAVENOUS
     Route: 040
     Dates: start: 20100624, end: 20100624
  3. HEPARIN [Concomitant]
  4. ASPIRIN [Concomitant]

REACTIONS (2)
  - CARDIO-RESPIRATORY ARREST [None]
  - VENTRICULAR FIBRILLATION [None]
